APPROVED DRUG PRODUCT: CANDESARTAN CILEXETIL AND HYDROCHLOROTHIAZIDE
Active Ingredient: CANDESARTAN CILEXETIL; HYDROCHLOROTHIAZIDE
Strength: 32MG;25MG
Dosage Form/Route: TABLET;ORAL
Application: A204100 | Product #003 | TE Code: AB
Applicant: MACLEODS PHARMACEUTICALS LTD
Approved: Feb 27, 2015 | RLD: No | RS: No | Type: RX